FAERS Safety Report 11626320 (Version 1)
Quarter: 2015Q4

REPORT INFORMATION
  Report Type: Spontaneous
  Country: US (occurrence: US)
  Receive Date: 20151013
  Receipt Date: 20151013
  Transmission Date: 20160304
  Serious: No
  Sender: FDA-Public Use
  Company Number: US-ROCHE-1503164

PATIENT
  Sex: Male

DRUGS (14)
  1. LIPITOR [Concomitant]
     Active Substance: ATORVASTATIN CALCIUM
  2. GABAPENTIN. [Concomitant]
     Active Substance: GABAPENTIN
     Dosage: PRN
     Route: 065
     Dates: start: 20130513
  3. EXCEDRIN EXTRA STRENGTH [Concomitant]
     Active Substance: ACETAMINOPHEN\ASPIRIN\CAFFEINE
     Dosage: 2 TABLETS, EVERY 6 HOURS
     Route: 048
  4. IBUPROFEN. [Concomitant]
     Active Substance: IBUPROFEN
     Dosage: EVERY 4 HRS.
     Route: 001
  5. NAPROSYN [Suspect]
     Active Substance: NAPROXEN
     Indication: PRODUCT USED FOR UNKNOWN INDICATION
     Route: 065
  6. ENALAPRIL [Concomitant]
     Active Substance: ENALAPRIL
     Route: 048
     Dates: start: 20141111
  7. LEVEMIR [Concomitant]
     Active Substance: INSULIN DETEMIR
     Dosage: 100 UNITS/ML
     Route: 058
     Dates: start: 20130513
  8. LIDOCAINE. [Concomitant]
     Active Substance: LIDOCAINE
     Dosage: 2% SOLUTION
     Route: 065
  9. DIPHENHYDRAMINE. [Concomitant]
     Active Substance: DIPHENHYDRAMINE
     Route: 048
  10. NOVOLIN N [Concomitant]
     Active Substance: INSULIN HUMAN
     Dosage: 100 UNITS/ML
     Route: 058
     Dates: start: 20130513
  11. CITALOPRAM [Concomitant]
     Active Substance: CITALOPRAM HYDROBROMIDE
     Route: 048
     Dates: start: 20130513
  12. LYRICA [Concomitant]
     Active Substance: PREGABALIN
     Route: 065
  13. CRESTOR [Concomitant]
     Active Substance: ROSUVASTATIN CALCIUM
  14. LYRICA [Concomitant]
     Active Substance: PREGABALIN
     Route: 048
     Dates: start: 20131125

REACTIONS (1)
  - Urticaria [Unknown]
